FAERS Safety Report 24169423 (Version 1)
Quarter: 2024Q3

REPORT INFORMATION
  Report Type: Report from Study
  Country: US (occurrence: US)
  Receive Date: 20240802
  Receipt Date: 20240802
  Transmission Date: 20241017
  Serious: Yes (Other)
  Sender: COVIS PHARMA
  Company Number: US-Covis Pharma GmbH-2024COV00871

PATIENT
  Age: 43 Year
  Sex: Female

DRUGS (6)
  1. PRILOSEC [Suspect]
     Active Substance: OMEPRAZOLE MAGNESIUM
  2. LYNPARZA [Suspect]
     Active Substance: OLAPARIB
     Indication: Breast cancer
     Dates: start: 20190205
  3. LYNPARZA [Suspect]
     Active Substance: OLAPARIB
     Dates: start: 201904
  4. LYNPARZA [Suspect]
     Active Substance: OLAPARIB
     Dates: start: 20200403, end: 202004
  5. LISINOPRIL [Suspect]
     Active Substance: LISINOPRIL
  6. VITAMINS [Concomitant]
     Active Substance: VITAMINS
     Dosage: CALCIUM 500MG TWICE DAILY (WITH VITAMIN D).

REACTIONS (27)
  - Breast cancer female [Unknown]
  - Metastases to bone [Unknown]
  - Vomiting [Unknown]
  - Nausea [Unknown]
  - Diarrhoea [Unknown]
  - Fatigue [Unknown]
  - Dyspnoea exertional [Unknown]
  - Blood pressure increased [Unknown]
  - Peripheral swelling [Unknown]
  - Hyperlipidaemia [Unknown]
  - Bipolar I disorder [Unknown]
  - Dehydration [Unknown]
  - Pain [Unknown]
  - Vulvovaginal mycotic infection [Unknown]
  - Hypertriglyceridaemia [Unknown]
  - Migraine [Unknown]
  - Stress urinary incontinence [Unknown]
  - Urge incontinence [Unknown]
  - Pollakiuria [Unknown]
  - Blood calcium decreased [Unknown]
  - Amnesia [Unknown]
  - Memory impairment [Unknown]
  - Neutropenia [Unknown]
  - Depression [Unknown]
  - Leukopenia [Unknown]
  - Sinusitis [Unknown]
  - Intentional product misuse [Unknown]
